FAERS Safety Report 4922162-X (Version None)
Quarter: 2006Q1

REPORT INFORMATION
  Report Type: 
  Country: None (occurrence: None)
  Receive Date: 20060224
  Receipt Date: 20050303
  Transmission Date: 20060701
  Serious: Yes (Death, Hospitalization)
  Sender: FDA-Public Use
  Company Number: US-MERCK-0503USA00792

PATIENT
  Age: 76 Year
  Sex: Female
  Weight: 42 kg

DRUGS (9)
  1. VIOXX [Suspect]
     Indication: PAIN
     Route: 048
     Dates: start: 19990901, end: 19991217
  2. VIOXX [Suspect]
     Route: 048
     Dates: start: 20000101, end: 20030305
  3. ZANTAC [Concomitant]
     Route: 048
  4. ALTACE [Concomitant]
     Route: 065
  5. BENTYL [Concomitant]
     Route: 065
  6. LIBRAX CAPSULES [Concomitant]
     Route: 065
  7. ULTRAM [Concomitant]
     Route: 065
  8. ADVIL [Concomitant]
     Route: 065
  9. XANAX [Concomitant]
     Route: 065

REACTIONS (11)
  - ABDOMINAL PAIN [None]
  - ABDOMINAL PAIN UPPER [None]
  - ARTERIOSCLEROSIS [None]
  - BACK PAIN [None]
  - DECREASED APPETITE [None]
  - GASTROINTESTINAL DISORDER [None]
  - HYPERTENSION [None]
  - MYOCARDIAL INFARCTION [None]
  - NAUSEA [None]
  - OSTEOPOROSIS [None]
  - TACHYCARDIA [None]
